FAERS Safety Report 8080896-5 (Version None)
Quarter: 2012Q1

REPORT INFORMATION
  Report Type: 
  Country: None (occurrence: None)
  Receive Date: 20120130
  Receipt Date: 20120120
  Transmission Date: 20120608
  Serious: Yes (Hospitalization)
  Sender: FDA-Public Use
  Company Number: JP-EISAI INC-E7389-01762-CLI-JP

PATIENT
  Sex: Female
  Weight: 36 kg

DRUGS (7)
  1. LOXOPROFEN [Concomitant]
     Indication: CANCER PAIN
     Route: 048
  2. HALAVEN [Suspect]
     Route: 041
     Dates: start: 20110928, end: 20111115
  3. REBAMIPIDE [Concomitant]
     Indication: PROPHYLAXIS
     Route: 048
  4. HALCION [Concomitant]
     Route: 048
  5. HALAVEN [Suspect]
     Indication: METASTASES TO SKIN
  6. GOSHA-JINKI-GAN [Concomitant]
     Route: 048
  7. DECADRON [Concomitant]
     Indication: PROPHYLAXIS
     Route: 048

REACTIONS (3)
  - FEBRILE NEUTROPENIA [None]
  - LEUKOPENIA [None]
  - LYMPHOPENIA [None]
